FAERS Safety Report 18233455 (Version 1)
Quarter: 2020Q3

REPORT INFORMATION
  Report Type: Spontaneous
  Country: US (occurrence: US)
  Receive Date: 20200904
  Receipt Date: 20200904
  Transmission Date: 20201103
  Serious: No
  Sender: FDA-Public Use
  Company Number: US-MYLANLABS-2020M1073193

PATIENT
  Age: 76 Year
  Sex: Male

DRUGS (1)
  1. WIXELA INHUB [Suspect]
     Active Substance: FLUTICASONE PROPIONATE\SALMETEROL XINAFOATE
     Indication: PRODUCT USED FOR UNKNOWN INDICATION
     Dosage: 250/50 MCG BID
     Route: 055
     Dates: start: 20200818

REACTIONS (3)
  - Device issue [Unknown]
  - Extra dose administered [Unknown]
  - Dose calculation error [Unknown]

NARRATIVE: CASE EVENT DATE: 202008
